FAERS Safety Report 4437138-9 (Version None)
Quarter: 2004Q3

REPORT INFORMATION
  Report Type: 
  Country: None (occurrence: None)
  Receive Date: 20040830
  Receipt Date: 20040819
  Transmission Date: 20050211
  Serious: Yes (Hospitalization)
  Sender: FDA-Public Use
  Company Number: US-AMGEN-US087942

PATIENT
  Sex: Female

DRUGS (3)
  1. ETANERCEPT [Suspect]
     Indication: PSORIASIS
     Route: 058
     Dates: start: 20040513, end: 20040801
  2. LASIX [Concomitant]
     Dates: start: 20030101
  3. LOTREL (NOVARTIS PHARMACEUTICALS) [Concomitant]

REACTIONS (2)
  - FLUID RETENTION [None]
  - HEART RATE IRREGULAR [None]
